FAERS Safety Report 25889877 (Version 1)
Quarter: 2025Q4

REPORT INFORMATION
  Report Type: Spontaneous
  Country: US (occurrence: US)
  Receive Date: 20251007
  Receipt Date: 20251007
  Transmission Date: 20260117
  Serious: No
  Sender: MERCK SHARP & DOHME LLC
  Company Number: US-009507513-2328485

PATIENT
  Sex: Female

DRUGS (13)
  1. PEMBROLIZUMAB [Suspect]
     Active Substance: PEMBROLIZUMAB
     Indication: Endometrial cancer
  2. LENVIMA [Suspect]
     Active Substance: LENVATINIB
     Indication: Endometrial cancer
     Dosage: 3 CAPSULES (12MG) BY MOUTH EVERY DAY
     Route: 048
     Dates: start: 20250508
  3. MULTIVITAMIN TAB [Concomitant]
  4. ASPIRIN TBE 81MG [Concomitant]
  5. ATORVASTATIN TAB 20MG [Concomitant]
  6. CLARITIN CAP 10MG [Concomitant]
  7. GABAPENTIN TAB 800MG [Concomitant]
  8. LEVOTHYROXIN TAB 112MCG [Concomitant]
  9. MEGESTROL AC TAB 40MG [Concomitant]
  10. OXYBUTYNIN C TB210MG [Concomitant]
  11. PANTOPRAZOLE TBE 40MG [Concomitant]
  12. SENNA TAB 8.6MG [Concomitant]
  13. AMITRIPTYLIN TAB 50MG [Concomitant]

REACTIONS (1)
  - Rash macular [Unknown]

NARRATIVE: CASE EVENT DATE: 20250902
